FAERS Safety Report 18358237 (Version 2)
Quarter: 2021Q3

REPORT INFORMATION
  Report Type: Report from Study
  Country: US (occurrence: US)
  Receive Date: 20201008
  Receipt Date: 20210917
  Transmission Date: 20211014
  Serious: Yes (Other)
  Sender: FDA-Public Use
  Company Number: US-INSMED, INC.-US-INS-20-01726

PATIENT
  Age: 58 Year
  Sex: Female

DRUGS (5)
  1. ARIKAYCE [Suspect]
     Active Substance: AMIKACIN
     Dosage: 590 MILLIGRAM, WEEKLY
     Route: 055
     Dates: start: 2020, end: 202012
  2. PREDNISONE. [Concomitant]
     Active Substance: PREDNISONE
     Indication: RHEUMATOID ARTHRITIS
  3. ARIKAYCE [Suspect]
     Active Substance: AMIKACIN
     Indication: MYCOBACTERIUM AVIUM COMPLEX INFECTION
     Dosage: 590 MILLIGRAM, UNK
     Route: 055
     Dates: start: 20200908, end: 20200922
  4. STEROIDS [Concomitant]
     Active Substance: UNSPECIFIED INGREDIENT
     Indication: PRODUCT USED FOR UNKNOWN INDICATION
  5. ARIKAYCE [Suspect]
     Active Substance: AMIKACIN
     Dosage: 590 MILLIGRAM, QOD
     Route: 055
     Dates: start: 20200928, end: 2020

REACTIONS (14)
  - Cough [Unknown]
  - Tinnitus [Recovered/Resolved]
  - Therapy interrupted [Unknown]
  - Productive cough [Unknown]
  - Joint swelling [Not Recovered/Not Resolved]
  - Malaise [Recovered/Resolved]
  - Wheezing [Unknown]
  - Dyspnoea [Recovering/Resolving]
  - Cough [Recovered/Resolved]
  - Secretion discharge [Recovered/Resolved]
  - Epistaxis [Recovered/Resolved]
  - Oxygen saturation decreased [Unknown]
  - Chest discomfort [Unknown]
  - Off label use [Unknown]

NARRATIVE: CASE EVENT DATE: 202009
